FAERS Safety Report 4513048-3 (Version None)
Quarter: 2004Q4

REPORT INFORMATION
  Report Type: 
  Country: None (occurrence: None)
  Receive Date: 20041130
  Receipt Date: 20041119
  Transmission Date: 20050328
  Serious: Yes (Hospitalization)
  Sender: FDA-Public Use
  Company Number: NO-AMGEN-UK100356

PATIENT
  Age: 35 Year
  Sex: Male

DRUGS (4)
  1. NEULASTA [Suspect]
     Indication: CHEMOTHERAPY
     Route: 058
     Dates: start: 20040101, end: 20040101
  2. BLEOMYCIN [Concomitant]
  3. ETOPOSIDE [Concomitant]
  4. CISPLATIN [Concomitant]

REACTIONS (2)
  - CARDIAC DISORDER [None]
  - PHLEBOTHROMBOSIS [None]
